FAERS Safety Report 25225794 (Version 1)
Quarter: 2025Q2

REPORT INFORMATION
  Report Type: Spontaneous
  Country: US (occurrence: US)
  Receive Date: 20250422
  Receipt Date: 20250422
  Transmission Date: 20250716
  Serious: No
  Sender: SANOFI AVENTIS
  Company Number: US-SA-2025SA114503

PATIENT
  Sex: Male

DRUGS (22)
  1. KEVZARA [Suspect]
     Active Substance: SARILUMAB
     Indication: Polymyalgia rheumatica
     Dosage: 200 MG, QOW
     Route: 058
     Dates: start: 20250228
  2. OHTUVAYRE [Concomitant]
     Active Substance: ENSIFENTRINE
  3. NASONEX [Concomitant]
     Active Substance: MOMETASONE FUROATE
  4. SENOKOT [Concomitant]
     Active Substance: SENNOSIDES
  5. MIRALAX [Concomitant]
     Active Substance: POLYETHYLENE GLYCOL 3350
  6. METAMUCIL [Concomitant]
     Active Substance: PLANTAGO SEED
  7. VITAMIN D3 [Concomitant]
     Active Substance: CHOLECALCIFEROL
  8. DULOXETINE HYDROCHLORIDE [Concomitant]
     Active Substance: DULOXETINE HYDROCHLORIDE
  9. ATORVASTATIN CALCIUM [Concomitant]
     Active Substance: ATORVASTATIN CALCIUM
  10. HYDROXYCHLOROQUINE SULFATE [Concomitant]
     Active Substance: HYDROXYCHLOROQUINE SULFATE
  11. PROBIOTICS NOS [Concomitant]
     Active Substance: PROBIOTICS NOS
  12. FERROUS SULFATE [Concomitant]
     Active Substance: FERROUS SULFATE
  13. SINGULAIR [Concomitant]
     Active Substance: MONTELUKAST SODIUM
  14. TAMSULOSIN HYDROCHLORIDE [Concomitant]
     Active Substance: TAMSULOSIN HYDROCHLORIDE
  15. MINERALS\VITAMINS [Concomitant]
     Active Substance: MINERALS\VITAMINS
  16. MUCINEX [Concomitant]
     Active Substance: GUAIFENESIN
  17. ASPIRIN [Concomitant]
     Active Substance: ASPIRIN
  18. GABAPENTIN [Concomitant]
     Active Substance: GABAPENTIN
  19. PROTONIX [Concomitant]
     Active Substance: PANTOPRAZOLE SODIUM
  20. PREDNISONE [Concomitant]
     Active Substance: PREDNISONE
  21. IMFINZI [Concomitant]
     Active Substance: DURVALUMAB
  22. ALLEGRA ALLERGY [Concomitant]
     Active Substance: FEXOFENADINE HYDROCHLORIDE

REACTIONS (3)
  - Pain [Unknown]
  - Fatigue [Unknown]
  - Drug ineffective [Unknown]
